FAERS Safety Report 5068079-4 (Version None)
Quarter: 2006Q3

REPORT INFORMATION
  Report Type: 
  Country: None (occurrence: None)
  Receive Date: 20060802
  Receipt Date: 20060601
  Transmission Date: 20061208
  Serious: Yes (Hospitalization)
  Sender: FDA-Public Use
  Company Number: DE-SANOFI-SYNTHELABO-A01200604211

PATIENT
  Sex: Female
  Weight: 64 kg

DRUGS (6)
  1. NEBILET [Concomitant]
     Indication: HYPERTENSION
     Route: 065
     Dates: start: 20051201
  2. SIMVAHEXAL [Suspect]
     Indication: HYPERLIPIDAEMIA
     Route: 050
     Dates: start: 20051201, end: 20060101
  3. MARCUMAR [Concomitant]
     Indication: AORTIC VALVE REPLACEMENT
     Route: 065
     Dates: start: 19890101
  4. ISCOVER [Suspect]
     Indication: STENT PLACEMENT
     Route: 048
     Dates: start: 20060420, end: 20060101
  5. ISCOVER [Suspect]
     Indication: CORONARY ANGIOPLASTY
     Route: 048
     Dates: start: 20060420, end: 20060101
  6. ISCOVER [Suspect]
     Indication: CORONARY ARTERY DISEASE
     Route: 048
     Dates: start: 20060420, end: 20060101

REACTIONS (1)
  - RHABDOMYOLYSIS [None]
